FAERS Safety Report 8518155-6 (Version None)
Quarter: 2012Q3

REPORT INFORMATION
  Report Type: 
  Country: None (occurrence: None)
  Receive Date: 20120718
  Receipt Date: 20111109
  Transmission Date: 20120928
  Serious: No
  Sender: FDA-Public Use
  Company Number: US-BRISTOL-MYERS SQUIBB COMPANY-16151953

PATIENT
  Age: 77 Year
  Sex: Female
  Weight: 89 kg

DRUGS (5)
  1. LISINOPRIL [Concomitant]
  2. GLIPIZIDE [Concomitant]
  3. HYDROCHLOROTHIAZIDE [Concomitant]
  4. WARFARIN SODIUM [Suspect]
     Indication: COAGULOPATHY
     Dosage: 1 DOSAGE FORM = 5MG IN 5 DAYS A WEEK AND 2.5MG IN 2 DAYS A WEEK.
     Route: 048
     Dates: start: 20090101
  5. METOPROLOL SUCCINATE [Concomitant]

REACTIONS (3)
  - DIZZINESS [None]
  - CHEST PAIN [None]
  - DRUG DOSE OMISSION [None]
